FAERS Safety Report 7612122-2 (Version None)
Quarter: 2011Q3

REPORT INFORMATION
  Report Type: 
  Country: None (occurrence: None)
  Receive Date: 20110715
  Receipt Date: 20110708
  Transmission Date: 20111222
  Serious: Yes (Hospitalization)
  Sender: FDA-Public Use
  Company Number: US-ELI_LILLY_AND_COMPANY-US201107002813

PATIENT
  Sex: Male

DRUGS (6)
  1. NOVOLOG [Concomitant]
  2. BYETTA [Suspect]
     Dosage: 10 UG, BID
     Route: 058
  3. BYETTA [Suspect]
     Dosage: 5 UG, BID
     Route: 058
  4. LASIX [Concomitant]
  5. COZAAR [Concomitant]
     Indication: CARDIAC DISORDER
     Dosage: 5 MG, UNK
     Route: 048
  6. POTASSIUM [Concomitant]
     Dosage: UNK
     Route: 048

REACTIONS (9)
  - BLOOD PRESSURE DECREASED [None]
  - OEDEMA PERIPHERAL [None]
  - RENAL DISORDER [None]
  - OFF LABEL USE [None]
  - DIZZINESS [None]
  - WEIGHT INCREASED [None]
  - FLUID RETENTION [None]
  - ABDOMINAL PAIN UPPER [None]
  - NEPHROLITHIASIS [None]
